FAERS Safety Report 25433298 (Version 1)
Quarter: 2025Q2

REPORT INFORMATION
  Report Type: Spontaneous
  Country: CN (occurrence: CN)
  Receive Date: 20250613
  Receipt Date: 20250613
  Transmission Date: 20250716
  Serious: Yes (Hospitalization)
  Sender: DAIICHI
  Company Number: CN-DSJP-DS-2025-146504-CN

PATIENT
  Age: 93 Year
  Sex: Male

DRUGS (2)
  1. EDOXABAN [Suspect]
     Active Substance: EDOXABAN
     Indication: Atrial fibrillation
     Dosage: 7.5 MG, QD
     Route: 048
     Dates: start: 20240101, end: 20250606
  2. EDOXABAN [Suspect]
     Active Substance: EDOXABAN
     Indication: Coagulopathy

REACTIONS (7)
  - Chest discomfort [Unknown]
  - Tachypnoea [Unknown]
  - Condition aggravated [Unknown]
  - Ecchymosis [Unknown]
  - Self-medication [Unknown]
  - Underdose [Unknown]
  - Wrong technique in product usage process [Unknown]

NARRATIVE: CASE EVENT DATE: 20250606
